FAERS Safety Report 6083361-X (Version None)
Quarter: 2009Q1

REPORT INFORMATION
  Report Type: 
  Country: None (occurrence: None)
  Receive Date: 20090217
  Receipt Date: 20090130
  Transmission Date: 20090719
  Serious: Yes (Hospitalization)
  Sender: FDA-Public Use
  Company Number: 000290

PATIENT
  Age: 82 Year
  Sex: Male
  Weight: 70.9 kg

DRUGS (5)
  1. ROTIGOTINE [Suspect]
     Dosage: 6 MG, QD; TRANSDERMAL
     Route: 062
  2. CELEBREX [Concomitant]
  3. COUMADIN [Concomitant]
  4. ASPIRIN [Concomitant]
  5. ZOCOR [Concomitant]

REACTIONS (1)
  - HIP ARTHROPLASTY [None]
